FAERS Safety Report 18311782 (Version 1)
Quarter: 2020Q3

REPORT INFORMATION
  Report Type: Spontaneous
  Country: US (occurrence: US)
  Receive Date: 20200924
  Receipt Date: 20200924
  Transmission Date: 20201103
  Serious: No
  Sender: FDA-Public Use
  Company Number: None

PATIENT
  Age: 72 Year
  Sex: Male
  Weight: 113.4 kg

DRUGS (1)
  1. ONDANSETRON (ONDANSETRON HCL 8MG TAB) [Suspect]
     Active Substance: ONDANSETRON HYDROCHLORIDE
     Indication: NAUSEA
     Dosage: ?          OTHER FREQUENCY:QID;?
     Route: 048
     Dates: start: 20200322, end: 20200519

REACTIONS (3)
  - Heart rate irregular [None]
  - Therapy cessation [None]
  - Ventricular tachycardia [None]

NARRATIVE: CASE EVENT DATE: 20200603
